FAERS Safety Report 10309222 (Version 1)
Quarter: 2014Q3

REPORT INFORMATION
  Report Type: Spontaneous
  Country: US (occurrence: None)
  Receive Date: 20140714
  Receipt Date: 20140714
  Transmission Date: 20150326
  Serious: Yes (Other)
  Sender: FDA-Public Use
  Company Number: 2014VER00071

PATIENT
  Age: 4 Year
  Sex: Female

DRUGS (2)
  1. UNSPECIFIED CHEMOTHERAPY DRUGS [Concomitant]
     Active Substance: UNSPECIFIED INGREDIENT
  2. MYORISAN [Suspect]
     Active Substance: ISOTRETINOIN
     Indication: BRAIN NEOPLASM
     Dates: start: 201402

REACTIONS (2)
  - Off label use [None]
  - Brain operation [None]

NARRATIVE: CASE EVENT DATE: 2013
